FAERS Safety Report 8020356-0 (Version None)
Quarter: 2012Q1

REPORT INFORMATION
  Report Type: 
  Country: None (occurrence: None)
  Receive Date: 20120103
  Receipt Date: 20111222
  Transmission Date: 20120608
  Serious: Yes (Other)
  Sender: FDA-Public Use
  Company Number: JP-PFIZER INC-2011307914

PATIENT
  Age: 69 Year
  Sex: Male
  Weight: 67 kg

DRUGS (11)
  1. DOPAMINE HYDROCHLORIDE [Suspect]
     Indication: ANAESTHESIA
  2. METHYLPREDNISOLONE SODIUM SUCCINATE [Suspect]
     Indication: PROPHYLAXIS
     Route: 042
  3. ROCURONIUM BROMIDE [Suspect]
     Indication: GENERAL ANAESTHESIA
     Route: 008
  4. ULINASTATIN [Suspect]
     Indication: PROPHYLAXIS
     Route: 042
  5. PROPOFOL [Suspect]
     Indication: ANAESTHESIA
  6. HEPARIN [Suspect]
     Indication: PROPHYLAXIS
     Route: 042
  7. KETAMINE HCL [Suspect]
     Indication: GENERAL ANAESTHESIA
     Dosage: UNK
     Route: 008
     Dates: start: 20110301
  8. REMIFENTANIL HYDROCHLORIDE [Suspect]
     Indication: GENERAL ANAESTHESIA
     Route: 008
  9. CEFAZOLIN SODIUM [Suspect]
     Indication: PROPHYLAXIS
     Route: 042
  10. TRANEXAMIC ACID [Suspect]
     Indication: PROPHYLAXIS
     Route: 042
  11. MIDAZOLAM [Suspect]
     Indication: GENERAL ANAESTHESIA
     Route: 008

REACTIONS (1)
  - PULSELESS ELECTRICAL ACTIVITY [None]
